FAERS Safety Report 18415854 (Version 5)
Quarter: 2022Q1

REPORT INFORMATION
  Report Type: Spontaneous
  Country: HU (occurrence: HU)
  Receive Date: 20201022
  Receipt Date: 20220318
  Transmission Date: 20220423
  Serious: Yes (Death, Life-Threatening, Hospitalization, Other)
  Sender: FDA-Public Use
  Company Number: None

PATIENT
  Age: 78 Year
  Sex: Male

DRUGS (32)
  1. METRONIDAZOLE [Suspect]
     Active Substance: METRONIDAZOLE
     Indication: Prophylaxis
     Dosage: 300 ML, QD (100 ML, TID)
     Route: 042
  2. METRONIDAZOLE [Suspect]
     Active Substance: METRONIDAZOLE
     Indication: Inflammation
  3. METRONIDAZOLE [Suspect]
     Active Substance: METRONIDAZOLE
     Indication: Clostridium difficile infection
  4. GENTAMICIN [Suspect]
     Active Substance: GENTAMICIN
     Indication: Enterobacter infection
     Dosage: 160 MG, QD
     Route: 042
  5. GENTAMICIN [Suspect]
     Active Substance: GENTAMICIN
     Indication: Pseudomonas infection
  6. GENTAMICIN [Suspect]
     Active Substance: GENTAMICIN
     Indication: Enterobacter infection
  7. VANCOMYCIN [Suspect]
     Active Substance: VANCOMYCIN
     Indication: Clostridium difficile infection
     Dosage: 125 MG, QID
     Route: 048
  8. SULFAMETHOXAZOLE AND TRIMETHOPRIM [Suspect]
     Active Substance: SULFAMETHOXAZOLE\TRIMETHOPRIM
     Indication: Citrobacter infection
     Dosage: 400/80 MG BID
     Route: 048
  9. CEFTAZIDIME [Suspect]
     Active Substance: CEFTAZIDIME
     Indication: Pseudomonas infection
     Dosage: 2 G, TID
     Route: 042
  10. CEFTAZIDIME [Suspect]
     Active Substance: CEFTAZIDIME
     Indication: Enterobacter infection
  11. CEFTAZIDIME [Suspect]
     Active Substance: CEFTAZIDIME
     Indication: Enterobacter infection
  12. IMIPENEM [Suspect]
     Active Substance: IMIPENEM
     Indication: Enterococcal infection
     Dosage: 500 MG, QID
     Route: 042
  13. IMIPENEM [Suspect]
     Active Substance: IMIPENEM
     Indication: Renal impairment
     Dosage: 500 MG, BID
     Route: 042
  14. AVIBACTAM SODIUM [Suspect]
     Active Substance: AVIBACTAM SODIUM
     Indication: Pneumonia klebsiella
     Dosage: 2.5 MG
     Route: 042
     Dates: start: 20180707, end: 20180713
  15. FOSFOMYCIN [Suspect]
     Active Substance: FOSFOMYCIN
     Indication: Pneumonia klebsiella
     Dosage: 3 G, QD
     Route: 048
  16. AMOXICILLIN\CLAVULANIC ACID [Suspect]
     Active Substance: AMOXICILLIN\CLAVULANIC ACID
     Indication: Inflammation
     Dosage: 1.2 G, TID
     Route: 042
  17. AMOXICILLIN\CLAVULANIC ACID [Suspect]
     Active Substance: AMOXICILLIN\CLAVULANIC ACID
     Indication: Prophylaxis
  18. CLAVULANIC ACID [Suspect]
     Active Substance: CLAVULANIC ACID
     Indication: Prophylaxis
     Dosage: 3.6 G, QD 91.2 G, TID)
     Route: 042
  19. CLAVULANIC ACID [Suspect]
     Active Substance: CLAVULANIC ACID
     Indication: Inflammation
  20. MEROPENEM [Suspect]
     Active Substance: MEROPENEM
     Indication: Pneumonia klebsiella
     Dosage: 1 G, BID
     Route: 042
  21. PIPERACILLIN SODIUM [Suspect]
     Active Substance: PIPERACILLIN SODIUM
     Indication: Antibiotic therapy
     Dosage: 4.5 G, QID
     Route: 042
  22. TAZOBACTAM SODIUM [Suspect]
     Active Substance: TAZOBACTAM SODIUM
     Indication: Product used for unknown indication
     Dosage: UNK (TAKEN FOR 6 DAYS)
     Route: 065
  23. FIDAXOMICIN [Suspect]
     Active Substance: FIDAXOMICIN
     Indication: Clostridium difficile infection
     Dosage: 200 MG, BID
     Route: 065
  24. PIPERACILLIN AND TAZOBACTAM [Suspect]
     Active Substance: PIPERACILLIN SODIUM\TAZOBACTAM SODIUM
     Indication: Antibiotic therapy
     Dosage: 4.5 G, QID
     Route: 042
  25. AVIBACTAM SODIUM\CEFTAZIDIME [Suspect]
     Active Substance: AVIBACTAM SODIUM\CEFTAZIDIME
     Indication: Pneumonia klebsiella
     Dosage: 2.5 G, TID
     Route: 042
  26. AVIBACTAM SODIUM\CEFTAZIDIME [Suspect]
     Active Substance: AVIBACTAM SODIUM\CEFTAZIDIME
     Indication: Abdominal infection
  27. AVIBACTAM SODIUM\CEFTAZIDIME [Suspect]
     Active Substance: AVIBACTAM SODIUM\CEFTAZIDIME
     Indication: Sepsis
  28. CEFUROXIME SODIUM [Suspect]
     Active Substance: CEFUROXIME SODIUM
     Indication: Enterobacter infection
     Dosage: 1.5 G, TID
     Route: 042
  29. CEFUROXIME SODIUM [Suspect]
     Active Substance: CEFUROXIME SODIUM
     Indication: Inflammation
  30. BETADINE [Concomitant]
     Active Substance: POVIDONE-IODINE
     Indication: Product used for unknown indication
     Dosage: UNK
     Route: 065
  31. METHENAMINE [Concomitant]
     Active Substance: METHENAMINE
     Indication: Product used for unknown indication
     Dosage: UNK
     Route: 065
  32. ASCORBIC ACID [Concomitant]
     Active Substance: ASCORBIC ACID
     Indication: Product used for unknown indication
     Dosage: UNK
     Route: 065

REACTIONS (17)
  - Sepsis [Fatal]
  - Pathogen resistance [Fatal]
  - Septic shock [Fatal]
  - Anaemia [Unknown]
  - Respiratory failure [Unknown]
  - Product use in unapproved indication [Unknown]
  - Melaena [Unknown]
  - Malaise [Unknown]
  - Hypoxia [Unknown]
  - Diarrhoea [Unknown]
  - Chest pain [Unknown]
  - Chills [Unknown]
  - Drug resistance [Unknown]
  - Pyrexia [Unknown]
  - Gastroenteritis [Unknown]
  - Dyspnoea [Unknown]
  - Clostridium difficile infection [Unknown]
